FAERS Safety Report 17804741 (Version 1)
Quarter: 2020Q2

REPORT INFORMATION
  Report Type: Spontaneous
  Country: US (occurrence: US)
  Receive Date: 20200519
  Receipt Date: 20200519
  Transmission Date: 20200714
  Serious: No
  Sender: FDA-Public Use
  Company Number: US-PFIZER INC-2020198831

PATIENT
  Age: 72 Year
  Sex: Female
  Weight: 86.2 kg

DRUGS (2)
  1. CELEBREX [Suspect]
     Active Substance: CELECOXIB
     Indication: ARTHRITIS
  2. CELEBREX [Suspect]
     Active Substance: CELECOXIB
     Indication: OSTEOARTHRITIS
     Dosage: 200 MG, 2X/DAY
     Route: 048

REACTIONS (5)
  - Fibromyalgia [Unknown]
  - Product use issue [Unknown]
  - Abdominal discomfort [Unknown]
  - Off label use [Unknown]
  - Asthma [Unknown]
